FAERS Safety Report 4606572-6 (Version None)
Quarter: 2005Q2

REPORT INFORMATION
  Report Type: 
  Country: None (occurrence: None)
  Receive Date: 20050223
  Receipt Date: 20040721
  Transmission Date: 20051028
  Serious: Yes (Life-Threatening)
  Sender: FDA-Public Use
  Company Number: WAES 0407USA01791

PATIENT
  Age: 65 Year
  Sex: Male

DRUGS (3)
  1. ZOCOR [Suspect]
     Indication: BLOOD CHOLESTEROL INCREASED
     Dosage: 20 MG/DAILY/PO
     Route: 048
     Dates: start: 20040720, end: 20040720
  2. CORGARD [Concomitant]
  3. LORAZEPAM [Concomitant]

REACTIONS (1)
  - DYSPNOEA [None]
